FAERS Safety Report 24879560 (Version 2)
Quarter: 2025Q1

REPORT INFORMATION
  Report Type: Spontaneous
  Country: IN (occurrence: IN)
  Receive Date: 20250123
  Receipt Date: 20250130
  Transmission Date: 20250409
  Serious: Yes (Hospitalization)
  Sender: ROCHE
  Company Number: IN-ROCHE-10000084222

PATIENT
  Age: 74 Year
  Sex: Female
  Weight: 63 kg

DRUGS (2)
  1. POLIVY [Suspect]
     Active Substance: POLATUZUMAB VEDOTIN-PIIQ
     Indication: Lymphoma transformation
     Route: 040
     Dates: start: 20240918
  2. POLIVY [Suspect]
     Active Substance: POLATUZUMAB VEDOTIN-PIIQ
     Route: 040
     Dates: start: 20240918

REACTIONS (8)
  - Pyrexia [Unknown]
  - Blood test abnormal [Unknown]
  - Cough [Unknown]
  - Off label use [Unknown]
  - Off label use [Unknown]
  - Asthenia [Unknown]
  - Drug intolerance [Unknown]
  - Viral infection [Recovering/Resolving]

NARRATIVE: CASE EVENT DATE: 20240918
